FAERS Safety Report 9960354 (Version 1)
Quarter: 2014Q1

REPORT INFORMATION
  Report Type: Report from Study
  Country: US (occurrence: US)
  Receive Date: 20140305
  Receipt Date: 20140305
  Transmission Date: 20141002
  Serious: Yes (Other)
  Sender: FDA-Public Use
  Company Number: US-ROCHE-1345212

PATIENT
  Sex: Female

DRUGS (9)
  1. LUCENTIS [Suspect]
     Indication: RETINAL VEIN OCCLUSION
     Route: 050
     Dates: start: 20101217
  2. AVASTIN [Suspect]
     Indication: MACULAR OEDEMA
     Route: 050
     Dates: start: 20101029
  3. ALPRAZOLAM [Concomitant]
     Route: 048
  4. DEPAKOTE [Concomitant]
     Route: 048
  5. LISINOPRIL/HCTZ [Concomitant]
  6. METOPROLOL TARTRATE [Concomitant]
     Route: 065
  7. PRAVASTATIN [Concomitant]
     Route: 065
  8. SUDAFED [Concomitant]
     Route: 065
  9. ZYMAXID [Concomitant]
     Dosage: 1 DROP QID 1 DAY BEFORE, QH DAY OF , QID X3 OS
     Route: 065
     Dates: start: 20111206

REACTIONS (5)
  - Retinal oedema [Unknown]
  - Cataract [Unknown]
  - Vision blurred [Unknown]
  - Off label use [Unknown]
  - Cataract nuclear [Unknown]
